FAERS Safety Report 5799736-X (Version None)
Quarter: 2008Q3

REPORT INFORMATION
  Report Type: 
  Country: None (occurrence: None)
  Receive Date: 20080703
  Receipt Date: 20080626
  Transmission Date: 20090109
  Serious: Yes (Hospitalization)
  Sender: FDA-Public Use
  Company Number: US-ASTRAZENECA-2008UW12870

PATIENT
  Sex: Male

DRUGS (2)
  1. SEROQUEL [Suspect]
     Dosage: OVER 1000 MG
     Route: 048
  2. ABILIFY [Concomitant]

REACTIONS (3)
  - ALCOHOL USE [None]
  - HEAT STROKE [None]
  - PYREXIA [None]
